FAERS Safety Report 20209114 (Version 1)
Quarter: 2021Q4

REPORT INFORMATION
  Report Type: Spontaneous
  Country: FR (occurrence: FR)
  Receive Date: 20211220
  Receipt Date: 20211220
  Transmission Date: 20220303
  Serious: Yes (Hospitalization, Disabling, Congenital Anomaly, Other)
  Sender: FDA-Public Use
  Company Number: FR-ABBOTT-08P-056-0483642-00

PATIENT
  Age: 0 Day
  Sex: Male
  Weight: 2.97 kg

DRUGS (2)
  1. VALPROIC ACID [Suspect]
     Active Substance: VALPROIC ACID
     Indication: Maternal exposure timing unspecified
     Route: 064
  2. FOLIC ACID [Concomitant]
     Active Substance: FOLIC ACID
     Indication: Maternal exposure timing unspecified
     Route: 064

REACTIONS (34)
  - Psychomotor retardation [Not Recovered/Not Resolved]
  - Asthma [Not Recovered/Not Resolved]
  - Eczema [Not Recovered/Not Resolved]
  - Adenoidectomy [Unknown]
  - Ear tube insertion [Unknown]
  - Malaise [Not Recovered/Not Resolved]
  - Cyanosis [Not Recovered/Not Resolved]
  - Pallor [Not Recovered/Not Resolved]
  - Tremor [Not Recovered/Not Resolved]
  - Hypertonia [Not Recovered/Not Resolved]
  - Loss of consciousness [Not Recovered/Not Resolved]
  - Electroencephalogram abnormal [Not Recovered/Not Resolved]
  - Dysmorphism [Not Recovered/Not Resolved]
  - Ear malformation [Unknown]
  - Hypertelorism [Unknown]
  - Dysmorphism [Unknown]
  - Naevus flammeus [Unknown]
  - Congenital foot malformation [Not Recovered/Not Resolved]
  - Scoliosis [Not Recovered/Not Resolved]
  - Kyphosis congenital [Not Recovered/Not Resolved]
  - Speech disorder developmental [Unknown]
  - Foetal exposure during pregnancy [Not Recovered/Not Resolved]
  - Bronchiolitis [Unknown]
  - Muscle spasticity [Unknown]
  - Dennie-Morgan fold [Unknown]
  - Communication disorder [Unknown]
  - Laryngitis [Unknown]
  - Cyanosis [Unknown]
  - Tremor [Unknown]
  - Hypertonia [Unknown]
  - Oropharyngeal discomfort [Unknown]
  - Educational problem [Unknown]
  - Myopia [Unknown]
  - Astigmatism [Unknown]

NARRATIVE: CASE EVENT DATE: 20050513
